FAERS Safety Report 9795798 (Version 2)
Quarter: 2014Q1

REPORT INFORMATION
  Report Type: Report from Study
  Country: AU (occurrence: AU)
  Receive Date: 20140103
  Receipt Date: 20140123
  Transmission Date: 20141002
  Serious: Yes (Hospitalization)
  Sender: FDA-Public Use
  Company Number: PHHY2013AU154344

PATIENT
  Age: 50 Year
  Sex: Male

DRUGS (2)
  1. CLOZARIL [Suspect]
     Dosage: 750 MG, UNK
     Dates: start: 19930903
  2. CLOZARIL [Suspect]
     Dosage: 325 MG, UNK

REACTIONS (3)
  - Urinary tract infection [Unknown]
  - White blood cell count increased [Recovered/Resolved]
  - Neutrophil count increased [Recovered/Resolved]
